FAERS Safety Report 6375659-2 (Version None)
Quarter: 2009Q3

REPORT INFORMATION
  Report Type: 
  Country: None (occurrence: None)
  Receive Date: 20090921
  Receipt Date: 20090907
  Transmission Date: 20100115
  Serious: Yes (Hospitalization, Disabling)
  Sender: FDA-Public Use
  Company Number: USA/USA/09/0001776

PATIENT
  Age: 83 Year
  Sex: Female

DRUGS (3)
  1. RISPERIDONE [Suspect]
     Indication: SCHIZOPHRENIA
     Dosage: 2 MG, DAILY, ORAL; 2 MG, DAILY, ORAL; 1 MG, DAILY, ORAL
     Route: 048
     Dates: start: 20090826, end: 20090101
  2. RISPERIDONE [Suspect]
     Indication: SCHIZOPHRENIA
     Dosage: 2 MG, DAILY, ORAL; 2 MG, DAILY, ORAL; 1 MG, DAILY, ORAL
     Route: 048
     Dates: start: 20090501, end: 20090811
  3. RISPERIDONE [Suspect]
     Indication: SCHIZOPHRENIA
     Dosage: 2 MG, DAILY, ORAL; 2 MG, DAILY, ORAL; 1 MG, DAILY, ORAL
     Route: 048
     Dates: start: 20090101, end: 20090907

REACTIONS (9)
  - BLOOD DISORDER [None]
  - CAROTID ARTERY OCCLUSION [None]
  - FATIGUE [None]
  - INFECTION [None]
  - ISCHAEMIC STROKE [None]
  - LETHARGY [None]
  - PRODUCT SUBSTITUTION ISSUE [None]
  - SCHIZOPHRENIA [None]
  - TRANSIENT ISCHAEMIC ATTACK [None]
